FAERS Safety Report 15429711 (Version 1)
Quarter: 2018Q3

REPORT INFORMATION
  Report Type: Spontaneous
  Country: US (occurrence: US)
  Receive Date: 20180917
  Receipt Date: 20180917
  Transmission Date: 20181010
  Serious: No
  Sender: FDA-Public Use
  Company Number: None

PATIENT
  Age: 61 Year
  Sex: Female
  Weight: 68.49 kg

DRUGS (3)
  1. ENBREL [Suspect]
     Active Substance: ETANERCEPT
     Indication: PSORIATIC ARTHROPATHY
  2. ENBREL [Suspect]
     Active Substance: ETANERCEPT
     Indication: RHEUMATOID ARTHRITIS
     Dosage: INJECT 50 MG SUBCUTANEOUSLY ONCE WEEKLY AS DIRECTED
     Route: 058
     Dates: start: 201411
  3. ENBREL [Suspect]
     Active Substance: ETANERCEPT
     Indication: HIDRADENITIS

REACTIONS (1)
  - Oesophageal disorder [None]
